FAERS Safety Report 19861007 (Version 3)
Quarter: 2022Q2

REPORT INFORMATION
  Report Type: Spontaneous
  Country: US (occurrence: None)
  Receive Date: 20210921
  Receipt Date: 20220513
  Transmission Date: 20220720
  Serious: Yes (Other)
  Sender: FDA-Public Use
  Company Number: 2021A726981

PATIENT
  Age: 62 Year
  Sex: Female
  Weight: 102.5 kg

DRUGS (37)
  1. NEXIUM [Suspect]
     Active Substance: ESOMEPRAZOLE MAGNESIUM
     Indication: Gastrooesophageal reflux disease
     Route: 048
     Dates: start: 2014, end: 2019
  2. PRILOSEC [Suspect]
     Active Substance: OMEPRAZOLE MAGNESIUM
     Indication: Gastrooesophageal reflux disease
     Route: 048
     Dates: start: 2014, end: 2019
  3. PRILOSEC [Suspect]
     Active Substance: OMEPRAZOLE MAGNESIUM
     Indication: Gastrooesophageal reflux disease
     Dosage: GENERIC
     Route: 065
     Dates: start: 2017, end: 2019
  4. DEXILANT [Suspect]
     Active Substance: DEXLANSOPRAZOLE
     Indication: Gastrooesophageal reflux disease
     Route: 065
     Dates: start: 2014, end: 2019
  5. PROTONIX [Suspect]
     Active Substance: PANTOPRAZOLE SODIUM
     Indication: Gastrooesophageal reflux disease
     Route: 065
     Dates: start: 2014, end: 2019
  6. PROTONIX [Suspect]
     Active Substance: PANTOPRAZOLE SODIUM
     Indication: Gastrooesophageal reflux disease
     Dosage: GENERIC
     Route: 065
     Dates: start: 2020, end: 2021
  7. LEVOTHYROXINE [Concomitant]
     Active Substance: LEVOTHYROXINE
  8. LORTAB [Concomitant]
     Active Substance: ACETAMINOPHEN\HYDROCODONE BITARTRATE
  9. ASPIRIN [Concomitant]
     Active Substance: ASPIRIN
  10. CLONIDINE [Concomitant]
     Active Substance: CLONIDINE
  11. LASIX [Concomitant]
     Active Substance: FUROSEMIDE
  12. NOVOLOG [Concomitant]
     Active Substance: INSULIN ASPART
  13. POTASSIUM [Concomitant]
     Active Substance: POTASSIUM
  14. TRAZODONE [Concomitant]
     Active Substance: TRAZODONE HYDROCHLORIDE
  15. VASOTEC [Concomitant]
     Active Substance: ENALAPRIL MALEATE
  16. ZIAC [Concomitant]
     Active Substance: BISOPROLOL FUMARATE\HYDROCHLOROTHIAZIDE
  17. FLUCONAZOLE [Concomitant]
     Active Substance: FLUCONAZOLE
  18. ACETAMINOPHEN\HYDROCODONE BITARTRATE [Concomitant]
     Active Substance: ACETAMINOPHEN\HYDROCODONE BITARTRATE
  19. AMOXICILLIN [Concomitant]
     Active Substance: AMOXICILLIN
  20. LEVOCETIRIZINE [Concomitant]
     Active Substance: LEVOCETIRIZINE
  21. AZITHROMYCIN [Concomitant]
     Active Substance: AZITHROMYCIN
  22. CEPHALEXIN [Concomitant]
     Active Substance: CEPHALEXIN
  23. VITAMIN D2 [Concomitant]
     Active Substance: ERGOCALCIFEROL
  24. IBUPROFEN [Concomitant]
     Active Substance: IBUPROFEN
  25. VOLTAREN [Concomitant]
     Active Substance: DICLOFENAC SODIUM
  26. TIZANIDINE [Concomitant]
     Active Substance: TIZANIDINE
  27. ACETAMINOPHEN\BUTALBITAL\CAFFEINE [Concomitant]
     Active Substance: ACETAMINOPHEN\BUTALBITAL\CAFFEINE
  28. LEVOFLOXACIN [Concomitant]
     Active Substance: LEVOFLOXACIN
  29. MOMETASONE [Concomitant]
     Active Substance: MOMETASONE
  30. CEFUROXIME [Concomitant]
     Active Substance: CEFUROXIME
     Indication: Infection
  31. DOXYCYCLINE [Concomitant]
     Active Substance: DOXYCYCLINE
     Indication: Infection
  32. SULFAMETHOXAZOLE AND TRIMETHOPRIM [Concomitant]
     Active Substance: SULFAMETHOXAZOLE\TRIMETHOPRIM
     Indication: Infection
  33. ACETAMINOPHEN [Concomitant]
     Active Substance: ACETAMINOPHEN
     Indication: Headache
  34. PEPCID [Concomitant]
     Active Substance: FAMOTIDINE
  35. ZANTAC [Concomitant]
     Active Substance: RANITIDINE HYDROCHLORIDE
  36. TUMS [Concomitant]
     Active Substance: CALCIUM CARBONATE
  37. ROLAIDS [Concomitant]
     Active Substance: CALCIUM CARBONATE\MAGNESIUM HYDROXIDE

REACTIONS (1)
  - Acute kidney injury [Not Recovered/Not Resolved]

NARRATIVE: CASE EVENT DATE: 20170101
